FAERS Safety Report 10232969 (Version 1)
Quarter: 2014Q2

REPORT INFORMATION
  Report Type: Spontaneous
  Country: US (occurrence: None)
  Receive Date: 20140611
  Receipt Date: 20140611
  Transmission Date: 20141212
  Serious: Yes (Other)
  Sender: FDA-Public Use
  Company Number: None

PATIENT
  Age: 24 Year
  Sex: Female
  Weight: 57.15 kg

DRUGS (4)
  1. NUVA RING [Suspect]
     Indication: CONTRACEPTION
     Dosage: 1 RING, Q3 WEEKS, VAGINAL
     Route: 067
  2. OMEPRAZOLE [Concomitant]
  3. MULTIVITAMIN [Concomitant]
  4. TRIAMCINOLONE OINTMENT [Concomitant]

REACTIONS (1)
  - Pregnancy with contraceptive device [None]
